FAERS Safety Report 7949811-6 (Version None)
Quarter: 2011Q4

REPORT INFORMATION
  Report Type: 
  Country: None (occurrence: None)
  Receive Date: 20111130
  Receipt Date: 20111121
  Transmission Date: 20120403
  Serious: Yes (Other)
  Sender: FDA-Public Use
  Company Number: JP-MERCK-1111USA03556

PATIENT

DRUGS (4)
  1. LANSOPRAZOLE [Concomitant]
     Route: 065
  2. PRADAXA [Concomitant]
     Route: 048
  3. WARFARIN POTASSIUM [Concomitant]
     Route: 048
  4. SINEMET [Suspect]
     Route: 048

REACTIONS (1)
  - MULTI-ORGAN FAILURE [None]
